FAERS Safety Report 8187688-7 (Version None)
Quarter: 2012Q1

REPORT INFORMATION
  Report Type: 
  Country: None (occurrence: None)
  Receive Date: 20120306
  Receipt Date: 20120302
  Transmission Date: 20120608
  Serious: Yes (Death)
  Sender: FDA-Public Use
  Company Number: US-ASTRAZENECA-2012SE09139

PATIENT
  Age: 59 Year
  Sex: Female
  Weight: 53.1 kg

DRUGS (1)
  1. SYMBICORT [Suspect]
     Indication: ASTHMA
     Dosage: 80/4.5 , 2 INHALATIONS, TWICE DAILY
     Route: 055
     Dates: start: 20101104

REACTIONS (1)
  - CARDIOPULMONARY FAILURE [None]
